FAERS Safety Report 9880210 (Version 4)
Quarter: 2014Q2

REPORT INFORMATION
  Report Type: Spontaneous
  Country: US (occurrence: US)
  Receive Date: 20140207
  Receipt Date: 20140501
  Transmission Date: 20141212
  Serious: No
  Sender: FDA-Public Use
  Company Number: US-BIOGENIDEC-2014BI009301

PATIENT
  Sex: Female
  Weight: 56 kg

DRUGS (4)
  1. TECFIDERA [Suspect]
     Indication: PRODUCT USED FOR UNKNOWN INDICATION
     Route: 048
  2. TECFIDERA [Suspect]
     Indication: PRODUCT USED FOR UNKNOWN INDICATION
     Route: 048
  3. NALTREXONE [Concomitant]
  4. VITAMIN D [Concomitant]

REACTIONS (5)
  - Depression [Not Recovered/Not Resolved]
  - Flushing [Recovered/Resolved]
  - Rash [Unknown]
  - Nausea [Unknown]
  - Weight decreased [Unknown]
